FAERS Safety Report 10052258 (Version 2)
Quarter: 2014Q2

REPORT INFORMATION
  Report Type: Spontaneous
  Country: FR (occurrence: FR)
  Receive Date: 20140402
  Receipt Date: 20140410
  Transmission Date: 20141212
  Serious: Yes (Hospitalization)
  Sender: FDA-Public Use
  Company Number: FR-JNJFOC-20140313832

PATIENT
  Age: 96 Year
  Sex: Female

DRUGS (9)
  1. DUROGESIC [Suspect]
     Indication: BACK PAIN
     Route: 062
     Dates: start: 20140219, end: 20140308
  2. TOPALGIC LP [Suspect]
     Indication: BACK PAIN
     Route: 048
     Dates: end: 20140308
  3. ACTISKENAN [Suspect]
     Indication: BACK PAIN
     Route: 048
     Dates: start: 20140219, end: 20140308
  4. ACTISKENAN [Suspect]
     Indication: BACK PAIN
     Route: 048
     Dates: start: 20140219, end: 20140308
  5. SERESTA [Suspect]
     Indication: BACK PAIN
     Route: 048
     Dates: end: 20140308
  6. COTAREG [Concomitant]
     Indication: PRODUCT USED FOR UNKNOWN INDICATION
     Route: 065
  7. RILMENIDINE [Concomitant]
     Indication: PRODUCT USED FOR UNKNOWN INDICATION
     Route: 065
  8. AMLODIPINE [Concomitant]
     Indication: PRODUCT USED FOR UNKNOWN INDICATION
     Route: 065
  9. AMIODARONE [Concomitant]
     Indication: PRODUCT USED FOR UNKNOWN INDICATION
     Route: 065

REACTIONS (6)
  - Fall [Recovered/Resolved]
  - Agitation [Recovered/Resolved]
  - Aggression [Recovered/Resolved]
  - Confusional state [Recovered/Resolved]
  - Urinary retention [Recovered/Resolved]
  - Haematoma [Recovered/Resolved]
